FAERS Safety Report 26175623 (Version 1)
Quarter: 2025Q4

REPORT INFORMATION
  Report Type: Spontaneous
  Country: EU (occurrence: EU)
  Receive Date: 20251218
  Receipt Date: 20251218
  Transmission Date: 20260117
  Serious: Yes (Death, Hospitalization)
  Sender: MERCK SHARP & DOHME LLC
  Company Number: EU-009507513-2358478

PATIENT
  Age: 49 Year
  Sex: Male
  Weight: 85 kg

DRUGS (20)
  1. KEYTRUDA [Suspect]
     Active Substance: PEMBROLIZUMAB
     Indication: Lung adenocarcinoma stage IV
     Dosage: TIME INTERVAL: CYCLICAL
     Route: 042
     Dates: start: 20250801, end: 20251105
  2. CARBOPLATIN [Concomitant]
     Active Substance: CARBOPLATIN
     Indication: Lung adenocarcinoma stage IV
     Dosage: TIME INTERVAL: CYCLICAL
     Route: 042
     Dates: start: 20250801
  3. PEMETREXED [Concomitant]
     Active Substance: PEMETREXED
     Indication: Lung adenocarcinoma stage IV
     Dosage: TIME INTERVAL: CYCLICAL
     Route: 042
     Dates: start: 20250801
  4. DEXIBUPROFEN [Concomitant]
     Active Substance: DEXIBUPROFEN
     Indication: Arthralgia
     Dates: start: 20250801
  5. PANTOPRAZOLE SODIUM [Concomitant]
     Active Substance: PANTOPRAZOLE SODIUM
     Indication: Gastrooesophageal reflux disease
     Dates: start: 20250801
  6. FOLIC ACID [Concomitant]
     Active Substance: FOLIC ACID
     Indication: Prophylaxis
     Dates: start: 20250709
  7. METOCLOPRAMIDE [Concomitant]
     Active Substance: METOCLOPRAMIDE
     Indication: Prophylaxis
     Dates: start: 20250709
  8. GRANISETRON [Concomitant]
     Active Substance: GRANISETRON
     Indication: Prophylaxis
     Dates: start: 20250709
  9. LOPERAMIDE [Concomitant]
     Active Substance: LOPERAMIDE
     Indication: Prophylaxis
     Dates: start: 20250709
  10. ALPRAZOLAM [Concomitant]
     Active Substance: ALPRAZOLAM
     Indication: Insomnia
     Dates: start: 20250801
  11. Bepanthen [Concomitant]
     Dates: start: 20250802
  12. FUROSEMIDE [Concomitant]
     Active Substance: FUROSEMIDE
     Indication: Fluid retention
     Dates: start: 20250805
  13. DEXAMETHASONE [Concomitant]
     Active Substance: DEXAMETHASONE
     Indication: Prophylaxis
     Dates: start: 20250822
  14. BROMAZEPAM [Concomitant]
     Active Substance: BROMAZEPAM
     Indication: Insomnia
     Dates: start: 20250822
  15. MAGNESIUM CARBONATE\MAGNESIUM OXIDE [Concomitant]
     Active Substance: MAGNESIUM CARBONATE\MAGNESIUM OXIDE
     Indication: Muscle spasms
     Dates: start: 20250822
  16. BROTIZOLAM [Concomitant]
     Active Substance: BROTIZOLAM
     Indication: Insomnia
  17. TRAMADOL [Concomitant]
     Active Substance: TRAMADOL
     Indication: Arthralgia
     Dates: start: 20250922
  18. DEXABENE [Concomitant]
     Indication: Arthralgia
     Dates: start: 20250922
  19. Prednisolone caproat [Concomitant]
     Indication: Haemorrhoids
  20. DEXPANTHENOL [Concomitant]
     Active Substance: DEXPANTHENOL
     Indication: Conjunctivitis

REACTIONS (1)
  - Pneumocystis jirovecii infection [Fatal]

NARRATIVE: CASE EVENT DATE: 20251124
